FAERS Safety Report 6253286-5 (Version None)
Quarter: 2009Q3

REPORT INFORMATION
  Report Type: 
  Country: None (occurrence: None)
  Receive Date: 20090701
  Receipt Date: 20090616
  Transmission Date: 20100115
  Serious: Yes (Hospitalization)
  Sender: FDA-Public Use
  Company Number: FR-GENENTECH-285809

PATIENT
  Sex: Male

DRUGS (4)
  1. BEVACIZUMAB [Suspect]
     Indication: COLORECTAL CANCER
     Dosage: 335 MG, Q2W
     Route: 042
     Dates: start: 20090324
  2. FOLINIC ACID [Suspect]
     Indication: COLORECTAL CANCER
     Dosage: 680 MG, Q2W
     Route: 042
     Dates: start: 20090324
  3. OXALIPLATIN [Suspect]
     Indication: COLORECTAL CANCER
     Dosage: 170 MG, Q2W
     Route: 042
     Dates: start: 20090324
  4. FLUOROURACIL [Suspect]
     Indication: COLORECTAL CANCER
     Dosage: 4100 MG, Q2W
     Route: 042
     Dates: start: 20090324

REACTIONS (1)
  - PYREXIA [None]
